FAERS Safety Report 20142065 (Version 1)
Quarter: 2021Q4

REPORT INFORMATION
  Report Type: Spontaneous
  Country: NL (occurrence: NL)
  Receive Date: 20211202
  Receipt Date: 20211202
  Transmission Date: 20220303
  Serious: Yes (Life-Threatening)
  Sender: FDA-Public Use
  Company Number: NL-FRESENIUS KABI-FK202113298

PATIENT
  Age: 68 Year
  Sex: Female

DRUGS (1)
  1. ADENOSINE [Suspect]
     Active Substance: ADENOSINE
     Indication: Cardiac stress test
     Route: 065
     Dates: start: 20181121, end: 20181121

REACTIONS (1)
  - Acute myocardial infarction [Recovered/Resolved]
